FAERS Safety Report 24122646 (Version 1)
Quarter: 2024Q3

REPORT INFORMATION
  Report Type: Report from Study
  Country: US (occurrence: None)
  Receive Date: 20240723
  Receipt Date: 20240723
  Transmission Date: 20241017
  Serious: Yes (Hospitalization)
  Sender: ASTRAZENECA
  Company Number: 2021A779520

PATIENT
  Sex: Male

DRUGS (1)
  1. BRILINTA [Suspect]
     Active Substance: TICAGRELOR
     Route: 048

REACTIONS (6)
  - Blood pressure increased [Unknown]
  - Palpitations [Unknown]
  - Cholelithiasis [Unknown]
  - Back pain [Unknown]
  - Chest pain [Unknown]
  - Product dose omission issue [Unknown]
